FAERS Safety Report 11362531 (Version 1)
Quarter: 2015Q3

REPORT INFORMATION
  Report Type: Spontaneous
  Country: CH (occurrence: CH)
  Receive Date: 20150810
  Receipt Date: 20150810
  Transmission Date: 20151125
  Serious: Yes (Other)
  Sender: FDA-Public Use
  Company Number: PHHY2014CH035875

PATIENT
  Age: 39 Year
  Sex: Male

DRUGS (3)
  1. GILENYA [Suspect]
     Active Substance: FINGOLIMOD HYDROCHLORIDE
     Indication: PRODUCT USED FOR UNKNOWN INDICATION
     Dosage: 1 DF, QOD
     Route: 048
     Dates: start: 20120820
  2. GILENYA [Suspect]
     Active Substance: FINGOLIMOD HYDROCHLORIDE
     Dosage: 1 DF, QD
     Route: 048
     Dates: start: 201307
  3. GILENYA [Suspect]
     Active Substance: FINGOLIMOD HYDROCHLORIDE
     Dosage: UNK UNK, QOD
     Route: 048
     Dates: start: 201301

REACTIONS (13)
  - Depression [Unknown]
  - Lymphopenia [Recovering/Resolving]
  - Prescribed underdose [Unknown]
  - Paraesthesia [Unknown]
  - Gastrointestinal disorder [Recovering/Resolving]
  - Drug intolerance [Unknown]
  - Genital herpes [Unknown]
  - Secondary progressive multiple sclerosis [Unknown]
  - Fatigue [Unknown]
  - Off label use [Unknown]
  - Lhermitte^s sign [Unknown]
  - Urinary tract disorder [Unknown]
  - Hepatic enzyme increased [Recovering/Resolving]

NARRATIVE: CASE EVENT DATE: 201209
